FAERS Safety Report 5054034-7 (Version None)
Quarter: 2006Q2

REPORT INFORMATION
  Report Type: 
  Country: None (occurrence: None)
  Receive Date: 20060616
  Receipt Date: 20050726
  Transmission Date: 20061013
  Serious: Yes (Hospitalization)
  Sender: FDA-Public Use
  Company Number: 200515982US

PATIENT
  Age: 35 Year
  Sex: Female

DRUGS (2)
  1. LANTUS [Suspect]
     Dosage: INJ
     Dates: start: 20050301
  2. INSULIN [Concomitant]

REACTIONS (3)
  - DIABETES MELLITUS INADEQUATE CONTROL [None]
  - SCAR [None]
  - SKIN REACTION [None]
